FAERS Safety Report 4976759-1 (Version None)
Quarter: 2006Q2

REPORT INFORMATION
  Report Type: 
  Country: None (occurrence: None)
  Receive Date: 20060419
  Receipt Date: 20060414
  Transmission Date: 20061013
  Serious: Yes (Other)
  Sender: FDA-Public Use
  Company Number: US-GLAXOSMITHKLINE-A0601832A

PATIENT
  Age: 75 Year
  Sex: Male

DRUGS (2)
  1. AVANDIA [Suspect]
     Dosage: 2MG PER DAY
     Route: 048
     Dates: end: 20050101
  2. LIPITOR [Concomitant]

REACTIONS (3)
  - DRUG INEFFECTIVE [None]
  - VISION BLURRED [None]
  - VISUAL ACUITY REDUCED [None]
